FAERS Safety Report 11630320 (Version 1)
Quarter: 2015Q4

REPORT INFORMATION
  Report Type: Spontaneous
  Country: US (occurrence: US)
  Receive Date: 20151014
  Receipt Date: 20151014
  Transmission Date: 20160304
  Serious: Yes (Other)
  Sender: FDA-Public Use
  Company Number: US-JNJFOC-20151003876

PATIENT
  Age: 46 Year
  Sex: Female

DRUGS (1)
  1. RISPERIDONE. [Suspect]
     Active Substance: RISPERIDONE
     Indication: BIPOLAR DISORDER
     Route: 065

REACTIONS (7)
  - Leukopenia [Unknown]
  - Thrombocytopenia [Unknown]
  - Hepatic encephalopathy [Unknown]
  - Dysarthria [Unknown]
  - Asterixis [Unknown]
  - Mental impairment [Unknown]
  - Fall [Unknown]
